FAERS Safety Report 18311089 (Version 1)
Quarter: 2020Q3

REPORT INFORMATION
  Report Type: Spontaneous
  Country: CA (occurrence: CA)
  Receive Date: 20200924
  Receipt Date: 20200924
  Transmission Date: 20201103
  Serious: Yes (Other)
  Sender: FDA-Public Use
  Company Number: CA-CELLTRION INC.-2018CA024888

PATIENT

DRUGS (20)
  1. INFLECTRA [Suspect]
     Active Substance: INFLIXIMAB-DYYB
     Dosage: 5 MG/KG EVERY 8 WEEKS
     Route: 042
     Dates: start: 20191211
  2. INFLECTRA [Suspect]
     Active Substance: INFLIXIMAB-DYYB
     Dosage: 400 MG, 0, 2, 6, WEEKS, THEN EVERY 8 WEEKS
     Route: 042
     Dates: start: 20190424
  3. CANNABIDIOL [Concomitant]
     Active Substance: CANNABIDIOL
     Dosage: 1 MG, 3X/DAY (OIL)
     Dates: start: 201805
  4. INFLECTRA [Suspect]
     Active Substance: INFLIXIMAB-DYYB
     Indication: CROHN^S DISEASE
     Dosage: 400 MG, 0, 2, 6, WEEKS, THEN EVERY 8 WEEKS
     Route: 042
  5. INFLECTRA [Suspect]
     Active Substance: INFLIXIMAB-DYYB
     Dosage: 400 MG, 0, 2, 6, WEEKS, THEN EVERY 8 WEEKS
     Route: 042
     Dates: start: 20181121, end: 20190814
  6. INFLECTRA [Suspect]
     Active Substance: INFLIXIMAB-DYYB
     Dosage: 400 MG, 0, 2, 6, WEEKS, THEN EVERY 8 WEEKS
     Route: 042
     Dates: start: 20181205
  7. INFLECTRA [Suspect]
     Active Substance: INFLIXIMAB-DYYB
     Dosage: 5 MG/KG EVERY 8 WEEKS
     Route: 042
     Dates: start: 20191016
  8. INFLECTRA [Suspect]
     Active Substance: INFLIXIMAB-DYYB
     Dosage: 5 MG/KG EVERY 8 WEEKS
     Route: 042
     Dates: start: 20200205
  9. INFLECTRA [Suspect]
     Active Substance: INFLIXIMAB-DYYB
     Dosage: 5 MG/KG EVERY 8 WEEKS
     Route: 042
     Dates: start: 20200401
  10. METHOTREXATE. [Concomitant]
     Active Substance: METHOTREXATE
     Dosage: 5 MG, WEEKLY (ONCE WEEKLY)
     Route: 048
  11. INFLECTRA [Suspect]
     Active Substance: INFLIXIMAB-DYYB
     Dosage: 5 MG/KG EVERY 8 WEEKS
     Route: 042
     Dates: start: 20200916
  12. FOLIC ACID. [Concomitant]
     Active Substance: FOLIC ACID
     Dosage: 5 MG, ONCE WEEKLY
     Route: 048
  13. INFLECTRA [Suspect]
     Active Substance: INFLIXIMAB-DYYB
     Dosage: 400 MG, 0, 2, 6, WEEKS, THEN EVERY 8 WEEKS
     Route: 042
     Dates: start: 20190227
  14. INFLECTRA [Suspect]
     Active Substance: INFLIXIMAB-DYYB
     Dosage: 400 MG, 0, 2, 6, WEEKS, THEN EVERY 8 WEEKS
     Route: 042
     Dates: start: 20190619
  15. INFLECTRA [Suspect]
     Active Substance: INFLIXIMAB-DYYB
     Dosage: 400 MG, 0, 2, 6, WEEKS, THEN EVERY 8 WEEKS
     Route: 042
     Dates: start: 20190814
  16. INFLECTRA [Suspect]
     Active Substance: INFLIXIMAB-DYYB
     Dosage: 5 MG/KG EVERY 8 WEEKS
     Route: 042
     Dates: start: 20200401
  17. OLESTYR [Concomitant]
     Active Substance: CHOLESTYRAMINE
     Dosage: 4 G, (1?2 PER DAY)
     Dates: start: 201805
  18. INFLECTRA [Suspect]
     Active Substance: INFLIXIMAB-DYYB
     Dosage: 400 MG, 0, 2, 6, WEEKS, THEN EVERY 8 WEEKS
     Route: 042
     Dates: start: 20190107
  19. THC OIL [Concomitant]
     Active Substance: .DELTA.8-TETRAHYDROCANNABINOL\HERBALS
     Dosage: 0.5 MG TID (3X/DAY)
     Dates: start: 201805
  20. INFLECTRA [Suspect]
     Active Substance: INFLIXIMAB-DYYB
     Dosage: 5 MG/KG EVERY 8 WEEKS
     Route: 042
     Dates: start: 20200722

REACTIONS (4)
  - Off label use [Unknown]
  - Intentional product use issue [Unknown]
  - Immunodeficiency [Unknown]
  - Condition aggravated [Recovering/Resolving]

NARRATIVE: CASE EVENT DATE: 20181205
